FAERS Safety Report 15274865 (Version 1)
Quarter: 2018Q3

REPORT INFORMATION
  Report Type: Spontaneous
  Country: US (occurrence: US)
  Receive Date: 20180727
  Receipt Date: 20180727
  Transmission Date: 20181010
  Serious: Yes (Disabling, Other)
  Sender: FDA-Public Use
  Company Number: None

PATIENT
  Age: 31 Year
  Sex: Female
  Weight: 127.01 kg

DRUGS (5)
  1. MIRENA [Suspect]
     Active Substance: LEVONORGESTREL
     Dates: start: 20140901, end: 20150101
  2. METFORMIN [Concomitant]
     Active Substance: METFORMIN HYDROCHLORIDE
  3. SUGAR BEAR HAIR GUMMY VITAMINS [Concomitant]
  4. UNISOM SLEEP AIDE [Concomitant]
  5. PHENTERMINE. [Concomitant]
     Active Substance: PHENTERMINE

REACTIONS (13)
  - Back pain [None]
  - Hyperhidrosis [None]
  - Mood swings [None]
  - Acne [None]
  - Abdominal pain lower [None]
  - Crying [None]
  - Palpitations [None]
  - Amnesia [None]
  - Insomnia [None]
  - Menstruation irregular [None]
  - Dyspareunia [None]
  - Dysmenorrhoea [None]
  - Alopecia [None]

NARRATIVE: CASE EVENT DATE: 20140902
